FAERS Safety Report 8845501 (Version 1)
Quarter: 2012Q4

REPORT INFORMATION
  Report Type: 
  Country: US (occurrence: US)
  Receive Date: 20121017
  Receipt Date: 20121017
  Transmission Date: 20130627
  Serious: No
  Sender: FDA-Public Use
  Company Number: US-PFIZER INC-2012258283

PATIENT
  Age: 72 Year
  Sex: Female

DRUGS (2)
  1. LYRICA [Suspect]
     Dosage: 75 mg, UNK
     Route: 048
  2. LYRICA [Suspect]
     Dosage: 50 mg, UNK
     Route: 048

REACTIONS (1)
  - Somnolence [Unknown]
